FAERS Safety Report 10270756 (Version 1)
Quarter: 2014Q3

REPORT INFORMATION
  Report Type: Spontaneous
  Country: US (occurrence: US)
  Receive Date: 20140701
  Receipt Date: 20140701
  Transmission Date: 20150326
  Serious: No
  Sender: FDA-Public Use
  Company Number: US-PFIZER INC-2014179375

PATIENT
  Age: 52 Year
  Sex: Female
  Weight: 97.51 kg

DRUGS (1)
  1. XELJANZ [Suspect]
     Active Substance: TOFACITINIB CITRATE
     Indication: RHEUMATOID ARTHRITIS
     Dosage: 5 MG, 2X/DAY
     Dates: start: 20140612

REACTIONS (2)
  - Back pain [Unknown]
  - Activities of daily living impaired [Unknown]

NARRATIVE: CASE EVENT DATE: 201406
